FAERS Safety Report 14199535 (Version 3)
Quarter: 2018Q1

REPORT INFORMATION
  Report Type: Spontaneous
  Country: LB (occurrence: LB)
  Receive Date: 20171117
  Receipt Date: 20180118
  Transmission Date: 20180508
  Serious: Yes (Hospitalization, Other)
  Sender: FDA-Public Use
  Company Number: LB-GLAXOSMITHKLINE-LB2017GSK174233

PATIENT
  Age: 6 Decade
  Sex: Female

DRUGS (1)
  1. RELVAR ELLIPTA [Suspect]
     Active Substance: FLUTICASONE FUROATE\VILANTEROL TRIFENATATE
     Indication: CHRONIC OBSTRUCTIVE PULMONARY DISEASE
     Dosage: 1 PUFF(S), 1D
     Route: 055

REACTIONS (3)
  - Accidental overdose [Recovered/Resolved]
  - Wrong technique in product usage process [Unknown]
  - Tremor [Recovered/Resolved]
